FAERS Safety Report 9351308 (Version 1)
Quarter: 2013Q2

REPORT INFORMATION
  Report Type: Spontaneous
  Country: DE (occurrence: DE)
  Receive Date: 20130617
  Receipt Date: 20130617
  Transmission Date: 20140414
  Serious: Yes (Other)
  Sender: FDA-Public Use
  Company Number: GXKR2013DE002114

PATIENT
  Sex: 0

DRUGS (1)
  1. ATORVASTATIN [Suspect]
     Indication: HYPERLIPIDAEMIA
     Dosage: 5 MG, QD
     Route: 048
     Dates: start: 20130411, end: 20130418

REACTIONS (2)
  - Headache [Recovered/Resolved]
  - Sleep disorder [Recovered/Resolved]
